FAERS Safety Report 4374954-6 (Version None)
Quarter: 2004Q2

REPORT INFORMATION
  Report Type: 
  Country: None (occurrence: None)
  Receive Date: 20040603
  Receipt Date: 20031006
  Transmission Date: 20050107
  Serious: Yes (Other)
  Sender: FDA-Public Use
  Company Number: 200318742US

PATIENT
  Age: 86 Year
  Sex: Male

DRUGS (2)
  1. LOVENOX [Suspect]
     Indication: DEEP VENOUS THROMBOSIS PROPHYLAXIS
     Dosage: 40 MG QD INJ
     Dates: start: 20030924, end: 20031004
  2. ASPIRIN [Concomitant]

REACTIONS (3)
  - GASTROINTESTINAL ULCER HAEMORRHAGE [None]
  - HAEMATOCHEZIA [None]
  - HAEMOGLOBIN DECREASED [None]
